FAERS Safety Report 10230774 (Version 1)
Quarter: 2014Q2

REPORT INFORMATION
  Report Type: Spontaneous
  Country: US (occurrence: None)
  Receive Date: 20140610
  Receipt Date: 20140610
  Transmission Date: 20141212
  Serious: Yes (Other)
  Sender: FDA-Public Use
  Company Number: None

PATIENT
  Age: 58 Year
  Sex: Male
  Weight: 82.56 kg

DRUGS (1)
  1. ZYCLARA 3.75% MEDICIS [Suspect]
     Indication: ACTINIC KERATOSIS
     Dates: start: 20140529, end: 20140606

REACTIONS (7)
  - Influenza like illness [None]
  - Arthralgia [None]
  - Pain of skin [None]
  - Abdominal pain upper [None]
  - Back pain [None]
  - Hypokinesia [None]
  - Pain [None]
